FAERS Safety Report 10725292 (Version 2)
Quarter: 2015Q2

REPORT INFORMATION
  Report Type: Spontaneous
  Country: US (occurrence: US)
  Receive Date: 20150120
  Receipt Date: 20150416
  Transmission Date: 20150821
  Serious: No
  Sender: FDA-Public Use
  Company Number: US-ELI_LILLY_AND_COMPANY-US201412008540

PATIENT
  Sex: Female

DRUGS (2)
  1. HUMULIN N [Suspect]
     Active Substance: INSULIN HUMAN
     Indication: TYPE 2 DIABETES MELLITUS
     Dosage: 9 U, EACH MORNING
     Route: 065
     Dates: start: 201107
  2. HUMULIN N [Suspect]
     Active Substance: INSULIN HUMAN
     Dosage: 9 U, EACH MORNING
     Route: 065

REACTIONS (3)
  - Blood glucose increased [Recovered/Resolved]
  - Injection site bruising [Unknown]
  - Incorrect dose administered [Unknown]
